FAERS Safety Report 8331696-X (Version None)
Quarter: 2012Q2

REPORT INFORMATION
  Report Type: 
  Country: None (occurrence: None)
  Receive Date: 20120502
  Receipt Date: 20120319
  Transmission Date: 20120825
  Serious: No
  Sender: FDA-Public Use
  Company Number: US-ASTRAZENECA-2012SE18524

PATIENT
  Age: 77 Year
  Sex: Female
  Weight: 86.2 kg

DRUGS (8)
  1. MULTAC [Concomitant]
  2. WARFARIN SODIUM [Concomitant]
  3. PRAVACHOL [Concomitant]
  4. LIPOFLAVINOID [Concomitant]
  5. ZINC SULFATE [Concomitant]
  6. TIAZAC [Concomitant]
  7. ENTOCORT EC [Suspect]
     Indication: COLITIS ULCERATIVE
     Route: 048
  8. CELEBREX (PRN) [Concomitant]

REACTIONS (3)
  - DRUG DOSE OMISSION [None]
  - DIARRHOEA [None]
  - OFF LABEL USE [None]
